FAERS Safety Report 9397288 (Version 3)
Quarter: 2014Q1

REPORT INFORMATION
  Report Type: Spontaneous
  Country: FR (occurrence: FR)
  Receive Date: 20130712
  Receipt Date: 20140122
  Transmission Date: 20141002
  Serious: Yes (Life-Threatening, Hospitalization, Other)
  Sender: FDA-Public Use
  Company Number: FR-JNJFOC-20130705836

PATIENT
  Age: 35 Year
  Sex: Male

DRUGS (2)
  1. STELARA [Suspect]
     Indication: PSORIASIS
     Dosage: SINCE 2 YEARS
     Route: 058
     Dates: start: 201105
  2. STELARA [Suspect]
     Indication: PSORIASIS
     Route: 058
     Dates: start: 201206

REACTIONS (6)
  - Pulmonary embolism [Recovered/Resolved]
  - Pulmonary infarction [Recovered/Resolved]
  - Psoriasis [Unknown]
  - Pyrexia [Unknown]
  - Venous thrombosis limb [Unknown]
  - Pleural effusion [Unknown]
